FAERS Safety Report 7460969-8 (Version None)
Quarter: 2011Q2

REPORT INFORMATION
  Report Type: 
  Country: None (occurrence: None)
  Receive Date: 20110505
  Receipt Date: 20110426
  Transmission Date: 20111010
  Serious: Yes (Hospitalization)
  Sender: FDA-Public Use
  Company Number: JP-ASTRAZENECA-2008AP03972

PATIENT
  Age: 58 Year
  Sex: Male

DRUGS (26)
  1. FOSCAVIR [Suspect]
     Route: 042
     Dates: start: 20070401, end: 20070507
  2. ITRACONAZOLE [Concomitant]
     Route: 048
     Dates: start: 20070612
  3. FOSCAVIR [Suspect]
     Route: 042
     Dates: start: 20070401, end: 20070507
  4. FOSCAVIR [Suspect]
     Route: 042
     Dates: start: 20070508, end: 20070610
  5. FOSCAVIR [Suspect]
     Route: 042
     Dates: start: 20070626, end: 20070710
  6. FOSCAVIR [Suspect]
     Route: 042
     Dates: start: 20070626, end: 20070710
  7. NORVIR [Suspect]
     Dosage: FREQUENCY UNKNOWN
     Route: 048
     Dates: start: 20070718
  8. REYATAZ [Suspect]
     Dosage: FREQUENCY UNKNOWN
     Route: 048
     Dates: start: 20070718
  9. STOCRIN [Concomitant]
     Indication: HIV INFECTION
     Dosage: FREQUENCY UNKNOWN
     Route: 048
     Dates: start: 20070606, end: 20070613
  10. FOSCAVIR [Suspect]
     Indication: CYTOMEGALOVIRUS TEST POSITIVE
     Route: 042
     Dates: start: 20070311, end: 20070331
  11. FOSCAVIR [Suspect]
     Route: 042
     Dates: start: 20070401, end: 20070507
  12. ZITHROMAX [Suspect]
     Indication: OPPORTUNISTIC INFECTION PROPHYLAXIS
     Route: 048
     Dates: start: 20070207, end: 20070530
  13. POLARAMINE [Concomitant]
     Indication: DRUG ERUPTION
     Route: 065
     Dates: start: 20070612, end: 20070618
  14. PREDONINE [Concomitant]
     Route: 065
     Dates: start: 20070622, end: 20070625
  15. FOSCAVIR [Suspect]
     Indication: CYTOMEGALOVIRUS ENTEROCOLITIS
     Route: 042
     Dates: start: 20070311, end: 20070331
  16. FOSCAVIR [Suspect]
     Indication: CYTOMEGALOVIRUS VIRAEMIA
     Route: 042
     Dates: start: 20070311, end: 20070331
  17. FOSCAVIR [Suspect]
     Route: 042
     Dates: start: 20070626, end: 20070710
  18. TRUVADA [Suspect]
     Route: 048
     Dates: start: 20070718
  19. MICAFUNGIN SODIUM [Concomitant]
     Indication: INFECTION PROPHYLAXIS
     Route: 041
     Dates: start: 20070330, end: 20070611
  20. PREDONINE [Concomitant]
     Indication: DRUG ERUPTION
     Route: 065
     Dates: start: 20070615, end: 20070621
  21. FOSCAVIR [Suspect]
     Route: 042
     Dates: start: 20070508, end: 20070610
  22. ZITHROMAX [Suspect]
     Route: 048
     Dates: start: 20070612, end: 20080331
  23. ZITHROMAX [Suspect]
     Route: 048
     Dates: start: 20070612, end: 20080331
  24. FOSCAVIR [Suspect]
     Route: 042
     Dates: start: 20070508, end: 20070610
  25. ZITHROMAX [Suspect]
     Indication: ANTIBIOTIC PROPHYLAXIS
     Route: 048
     Dates: start: 20070207, end: 20070530
  26. EPZICOM [Concomitant]
     Indication: HIV INFECTION
     Route: 048
     Dates: start: 20070606, end: 20070614

REACTIONS (8)
  - GLAUCOMA [None]
  - DRUG ERUPTION [None]
  - RENAL IMPAIRMENT [None]
  - BLOOD BILIRUBIN INCREASED [None]
  - UVEITIS [None]
  - CYTOMEGALOVIRUS TEST POSITIVE [None]
  - HYPOKALAEMIA [None]
  - HYPONATRAEMIA [None]
